FAERS Safety Report 20755992 (Version 1)
Quarter: 2022Q2

REPORT INFORMATION
  Report Type: Spontaneous
  Country: US (occurrence: None)
  Receive Date: 20220426
  Receipt Date: 20220426
  Transmission Date: 20220721
  Serious: Yes (Death)
  Sender: FDA-Public Use
  Company Number: None

PATIENT
  Age: 78 Year
  Sex: Female

DRUGS (1)
  1. OPSUMIT [Suspect]
     Active Substance: MACITENTAN
     Indication: Pulmonary arterial hypertension
     Dosage: FREQUENCY : DAILY;?
     Route: 048
     Dates: start: 20210115, end: 20220410

REACTIONS (9)
  - Asthenia [None]
  - Lethargy [None]
  - Anaemia [None]
  - Atelectasis [None]
  - Pneumonia [None]
  - Generalised oedema [None]
  - Acute kidney injury [None]
  - Gastrointestinal stromal tumour [None]
  - Abdominal wall anomaly [None]

NARRATIVE: CASE EVENT DATE: 20220410
